FAERS Safety Report 4512803-3 (Version None)
Quarter: 2004Q4

REPORT INFORMATION
  Report Type: 
  Country: None (occurrence: None)
  Receive Date: 20041119
  Receipt Date: 20041119
  Transmission Date: 20050328
  Serious: Yes (Hospitalization)
  Sender: FDA-Public Use
  Company Number: None

PATIENT
  Age: 17 Year
  Sex: Female
  Weight: 63 kg

DRUGS (3)
  1. SEASONALE [Suspect]
     Indication: CONTRACEPTION
     Dosage: 1 TABLET DAILY
     Dates: start: 20040701, end: 20041101
  2. ORAL CONTRACEPTIVE [Concomitant]
  3. PROTONIX [Concomitant]

REACTIONS (7)
  - BLOOD VISCOSITY INCREASED [None]
  - DEEP VEIN THROMBOSIS [None]
  - HEART RATE INCREASED [None]
  - INTERNATIONAL NORMALISED RATIO INCREASED [None]
  - PROTHROMBIN TIME PROLONGED [None]
  - PULMONARY EMBOLISM [None]
  - PYREXIA [None]
